FAERS Safety Report 12480789 (Version 2)
Quarter: 2016Q3

REPORT INFORMATION
  Report Type: Report from Study
  Country: FR (occurrence: FR)
  Receive Date: 20160620
  Receipt Date: 20160909
  Transmission Date: 20161109
  Serious: Yes (Other)
  Sender: FDA-Public Use
  Company Number: FR-PFIZER INC-2016267272

PATIENT
  Age: 39 Year
  Sex: Female
  Weight: 52 kg

DRUGS (6)
  1. FULVESTRANT [Concomitant]
     Active Substance: FULVESTRANT
     Dosage: UNK
     Dates: start: 20151125, end: 20160608
  2. PALBOCICLIB [Suspect]
     Active Substance: PALBOCICLIB
     Dosage: 75 MG, DAILY
     Dates: start: 20160621
  3. PALBOCICLIB [Suspect]
     Active Substance: PALBOCICLIB
     Dosage: ALTERNATING 100 MG DAILY AND 75 MG DAILY.
     Dates: start: 20160829
  4. PALBOCICLIB [Suspect]
     Active Substance: PALBOCICLIB
     Dosage: 100 MG, DAILY
     Route: 048
     Dates: start: 20160524, end: 20160607
  5. PALBOCICLIB [Suspect]
     Active Substance: PALBOCICLIB
     Indication: BREAST CANCER
     Dosage: 125 MG, UNK
     Route: 048
     Dates: start: 20151125, end: 20160511
  6. LETROZOLE. [Concomitant]
     Active Substance: LETROZOLE
     Indication: BREAST CANCER
     Dosage: UNK
     Dates: start: 20151125

REACTIONS (6)
  - Aspartate aminotransferase abnormal [Unknown]
  - Anaemia [Recovering/Resolving]
  - Sinusitis [Unknown]
  - Neutropenia [Recovering/Resolving]
  - Thrombocytopenia [Recovering/Resolving]
  - Pancytopenia [Not Recovered/Not Resolved]

NARRATIVE: CASE EVENT DATE: 20160606
